FAERS Safety Report 6969295-4 (Version None)
Quarter: 2010Q3

REPORT INFORMATION
  Report Type: 
  Country: None (occurrence: None)
  Receive Date: 20100907
  Receipt Date: 20100825
  Transmission Date: 20110219
  Serious: Yes (Other)
  Sender: FDA-Public Use
  Company Number: US-SANOFI-AVENTIS-2010SA045941

PATIENT
  Age: 76 Year
  Sex: Female

DRUGS (16)
  1. PLAVIX [Suspect]
     Indication: STENT PLACEMENT
     Route: 048
     Dates: start: 20090327, end: 20100816
  2. PLAVIX [Suspect]
     Indication: CORONARY ARTERY DISEASE
     Route: 048
     Dates: start: 20090327, end: 20100816
  3. NEBIVOLOL [Concomitant]
  4. LOVAZA [Concomitant]
  5. ASPIRIN [Concomitant]
  6. ACIPHEX [Concomitant]
  7. VITAMINS [Concomitant]
  8. MICARDIS HCT [Concomitant]
  9. CLONIDINE [Concomitant]
  10. CHONDROITIN SULFATE [Concomitant]
  11. BENICAR HCT [Concomitant]
  12. TUMS [Concomitant]
  13. GLUCOSAMINE [Concomitant]
  14. COQ10 [Concomitant]
  15. NITROSTAT [Concomitant]
     Indication: CHEST PAIN
  16. CALCIUM/VITAMIN D [Concomitant]

REACTIONS (7)
  - ASTHENIA [None]
  - BLOOD PRESSURE FLUCTUATION [None]
  - BLOOD PRESSURE SYSTOLIC INCREASED [None]
  - HYPOAESTHESIA [None]
  - MUSCULAR WEAKNESS [None]
  - MYALGIA [None]
  - PARAESTHESIA [None]
